FAERS Safety Report 13877734 (Version 1)
Quarter: 2017Q3

REPORT INFORMATION
  Report Type: Spontaneous
  Country: CN (occurrence: CN)
  Receive Date: 20170817
  Receipt Date: 20170817
  Transmission Date: 20171127
  Serious: Yes (Life-Threatening, Other)
  Sender: FDA-Public Use
  Company Number: CN-ELI_LILLY_AND_COMPANY-CN201708004478

PATIENT
  Age: 18 Year
  Sex: Male

DRUGS (2)
  1. DOCETAXEL. [Suspect]
     Active Substance: DOCETAXEL
     Indication: ALVEOLAR SOFT PART SARCOMA METASTATIC
     Dosage: 100 MG/M2, CYCLICAL
     Route: 042
     Dates: start: 2015
  2. GEMCITABINE HYDROCHLORIDE. [Suspect]
     Active Substance: GEMCITABINE HYDROCHLORIDE
     Indication: ALVEOLAR SOFT PART SARCOMA METASTATIC
     Dosage: 900 MG/M2, CYCLICAL
     Route: 042
     Dates: start: 2015

REACTIONS (1)
  - Drug resistance [Unknown]
